FAERS Safety Report 14680391 (Version 1)
Quarter: 2018Q1

REPORT INFORMATION
  Report Type: Spontaneous
  Country: US (occurrence: US)
  Receive Date: 20180326
  Receipt Date: 20180326
  Transmission Date: 20180509
  Serious: No
  Sender: FDA-Public Use
  Company Number: US-OSMOTICA_PHARMACEUTICAL_US_LLC-POI0573201700066

PATIENT
  Age: 94 Year
  Sex: Female

DRUGS (2)
  1. ANTIHISTAMINE [Suspect]
     Active Substance: ANTIHISTAMINES NOS
     Indication: SLEEP DISORDER
     Dates: end: 20171115
  2. OXYBUTYNIN CHLORIDE. [Suspect]
     Active Substance: OXYBUTYNIN CHLORIDE
     Indication: HYPERTONIC BLADDER
     Dates: start: 2016, end: 2016

REACTIONS (3)
  - Dry throat [Recovered/Resolved]
  - Cough [Recovered/Resolved]
  - Drug administration error [Recovered/Resolved]

NARRATIVE: CASE EVENT DATE: 2017
